FAERS Safety Report 7621742-0 (Version None)
Quarter: 2011Q3

REPORT INFORMATION
  Report Type: 
  Country: None (occurrence: None)
  Receive Date: 20110719
  Receipt Date: 20110711
  Transmission Date: 20111222
  Serious: Yes (Hospitalization)
  Sender: FDA-Public Use
  Company Number: GB-ASTRAZENECA-2011SE41034

PATIENT
  Age: 43 Year
  Sex: Female

DRUGS (6)
  1. SEROQUEL XR [Suspect]
     Route: 048
  2. RANITIDINE [Concomitant]
  3. HYDRALAZINE HCL [Concomitant]
  4. FUROSEMIDE [Concomitant]
  5. ENOXAPARIN SODIUM [Concomitant]
  6. SEROQUEL XR [Suspect]
     Indication: SCHIZOPHRENIA
     Route: 048

REACTIONS (5)
  - VENTRICULAR DYSFUNCTION [None]
  - SINUS TACHYCARDIA [None]
  - TACHYCARDIA [None]
  - MATERNAL EXPOSURE DURING PREGNANCY [None]
  - EXTRASYSTOLES [None]
